FAERS Safety Report 18354421 (Version 1)
Quarter: 2020Q4

REPORT INFORMATION
  Report Type: Spontaneous
  Country: US (occurrence: US)
  Receive Date: 20201006
  Receipt Date: 20201006
  Transmission Date: 20210114
  Serious: Yes (Death)
  Sender: FDA-Public Use
  Company Number: None

PATIENT
  Age: 21 Year
  Sex: Male

DRUGS (1)
  1. EQUATE COUGH DM [Suspect]
     Active Substance: DEXTROMETHORPHAN HYDROBROMIDE

REACTIONS (5)
  - Unresponsive to stimuli [None]
  - Renal failure [None]
  - Brain death [None]
  - Toxicity to various agents [None]
  - Hepatic failure [None]

NARRATIVE: CASE EVENT DATE: 20190504
